FAERS Safety Report 4842425-6 (Version None)
Quarter: 2005Q4

REPORT INFORMATION
  Report Type: 
  Country: None (occurrence: None)
  Receive Date: 20051125
  Receipt Date: 20051114
  Transmission Date: 20060501
  Serious: Yes (Death, Life-Threatening, Hospitalization, Other)
  Sender: FDA-Public Use
  Company Number: 006093

PATIENT
  Age: 73 Year
  Sex: Male
  Weight: 98 kg

DRUGS (3)
  1. ZEBETA [Suspect]
     Dosage: 2.5 MG, ORAL
     Route: 048
     Dates: start: 20040626, end: 20040626
  2. AMIODARONE HYDROCHLORIDE [Suspect]
     Indication: ATRIAL FIBRILLATION
     Dosage: 1200 MG, SINGLE, INTRAVENOUS
     Route: 042
     Dates: start: 20040626, end: 20040626
  3. BIVALIRUDIN (ANGIOMAX (BIVLIRUBIN) [Suspect]
     Dosage: SEE IMAGE
     Route: 040
     Dates: start: 20040616, end: 20040616

REACTIONS (8)
  - ATRIAL FIBRILLATION [None]
  - CARDIAC ARREST [None]
  - CARDIAC DISORDER [None]
  - CARDIOMEGALY [None]
  - CORONARY ARTERY STENOSIS [None]
  - POST PROCEDURAL COMPLICATION [None]
  - SCAR [None]
  - VENTRICULAR FIBRILLATION [None]
